FAERS Safety Report 21842207 (Version 1)
Quarter: 2023Q1

REPORT INFORMATION
  Report Type: Spontaneous
  Country: US (occurrence: US)
  Receive Date: 20230110
  Receipt Date: 20230110
  Transmission Date: 20230418
  Serious: Yes (Other)
  Sender: FDA-Public Use
  Company Number: US-STRIDES ARCOLAB LIMITED-2022SP001640

PATIENT
  Sex: Female

DRUGS (5)
  1. METHOTREXATE [Suspect]
     Active Substance: METHOTREXATE
     Indication: Morphoea
     Dosage: UNK, PER WEEK, 5 TABLET
     Route: 065
  2. TACROLIMUS [Suspect]
     Active Substance: TACROLIMUS
     Indication: Morphoea
     Dosage: UNK, OINTMENT FOR SEVERAL WEEKS
     Route: 061
  3. BETAMETHASONE [Suspect]
     Active Substance: BETAMETHASONE
     Indication: Morphoea
     Dosage: UNK, BID, FOR SEVERAL WEEKS
     Route: 061
  4. CALCIPOTRIENE [Suspect]
     Active Substance: CALCIPOTRIENE
     Indication: Morphoea
     Dosage: UNK, BID, OINTMENT
     Route: 061
  5. TOFACITINIB [Concomitant]
     Active Substance: TOFACITINIB
     Indication: Morphoea
     Dosage: 5 MILLIGRAM TWICE DAILY
     Route: 065

REACTIONS (1)
  - Drug ineffective for unapproved indication [Unknown]
